FAERS Safety Report 8964672 (Version 1)
Quarter: 2012Q4

REPORT INFORMATION
  Report Type: 
  Country: US (occurrence: US)
  Receive Date: 20121214
  Receipt Date: 20121214
  Transmission Date: 20130627
  Serious: No
  Sender: FDA-Public Use
  Company Number: US-VERTEX PHARMACEUTICALS INC.-2012-026041

PATIENT
  Sex: Female

DRUGS (4)
  1. INCIVEK [Suspect]
     Indication: HEPATITIS C
     Dosage: UNK
     Route: 048
     Dates: end: 201211
  2. RIBAVIRIN [Suspect]
     Indication: HEPATITIS C
  3. PEGINTERFERON [Suspect]
     Indication: HEPATITIS C
  4. PROCRIT [Suspect]
     Dosage: UNK
     Dates: start: 201211

REACTIONS (2)
  - Periorbital oedema [Recovered/Resolved]
  - Rash [Recovered/Resolved]
